FAERS Safety Report 16382436 (Version 1)
Quarter: 2019Q2

REPORT INFORMATION
  Report Type: Spontaneous
  Country: ES (occurrence: ES)
  Receive Date: 20190603
  Receipt Date: 20190603
  Transmission Date: 20190711
  Serious: Yes (Life-Threatening, Hospitalization)
  Sender: FDA-Public Use
  Company Number: ES-TEVA-2019-ES-1057238

PATIENT
  Age: 61 Year
  Sex: Male

DRUGS (6)
  1. VINCRISTINA [Suspect]
     Active Substance: VINCRISTINE
     Indication: B-CELL LYMPHOMA
     Dosage: 0.74 MG, 6 CICLOS, EN PC, DIAS 2-4 DEL CICLO
     Route: 041
     Dates: start: 20150709, end: 20151024
  2. CICLOFOSFAMIDA [Interacting]
     Active Substance: CYCLOPHOSPHAMIDE
     Indication: B-CELL LYMPHOMA
     Dosage: 1387.5 MG DAY 5 OF CYCLE
     Route: 042
     Dates: start: 20150712, end: 20151025
  3. METOTREXATO (418A) [Interacting]
     Active Substance: METHOTREXATE
     Indication: B-CELL LYMPHOMA
     Dosage: TOTAL DOSE 9098.6 MG, IN TWO DOSE: 28/11 / 2015-14 / 12/2015
     Dates: start: 20151128, end: 20151214
  4. RITUXIMAB, [Interacting]
     Active Substance: RITUXIMAB
     Indication: B-CELL LYMPHOMA
     Dosage: 693,75 MG 6 CICLOS
     Route: 042
     Dates: start: 20150708, end: 20151021
  5. ETOPOSIDO [Interacting]
     Active Substance: ETOPOSIDE
     Indication: B-CELL LYMPHOMA
     Dosage: 92.5 MG, 6 CICLOS, EN PC D?AS 2-4 DEL CICLO
     Route: 041
     Dates: start: 20150709, end: 20151024
  6. DOXORRUBICINA [Interacting]
     Active Substance: DOXORUBICIN HYDROCHLORIDE
     Indication: B-CELL LYMPHOMA
     Dosage: 18.5 G EN PC, DIAS 2-4 DEL CICLO
     Route: 041
     Dates: start: 20150709, end: 20151024

REACTIONS (2)
  - Acute myeloid leukaemia [Recovered/Resolved with Sequelae]
  - Drug interaction [Unknown]

NARRATIVE: CASE EVENT DATE: 20160508
